FAERS Safety Report 16177835 (Version 1)
Quarter: 2019Q2

REPORT INFORMATION
  Report Type: Spontaneous
  Country: ES (occurrence: ES)
  Receive Date: 20190410
  Receipt Date: 20190410
  Transmission Date: 20190711
  Serious: Yes (Life-Threatening, Other)
  Sender: FDA-Public Use
  Company Number: ES-AUROBINDO-AUR-APL-2019-018707

PATIENT

DRUGS (3)
  1. IBUPROFEN. [Suspect]
     Active Substance: IBUPROFEN
     Indication: PYREXIA
     Dosage: 50 MILLIGRAM, DAILY
     Route: 048
     Dates: start: 20190205, end: 20190207
  2. CEFOTAXIME [Suspect]
     Active Substance: CEFOTAXIME SODIUM
     Indication: MASTOIDITIS
     Dosage: 735 MILLIGRAM 4 TIMES A DAY
     Route: 042
     Dates: start: 20190205, end: 20190208
  3. CLOXACILLIN [Suspect]
     Active Substance: CLOXACILLIN
     Indication: MASTOIDITIS
     Dosage: 500 MILLIGRAM 4 TIMES A DAY
     Route: 042
     Dates: start: 20190205, end: 20190208

REACTIONS (1)
  - Agranulocytosis [Recovered/Resolved]

NARRATIVE: CASE EVENT DATE: 20190208
